FAERS Safety Report 6690208-7 (Version None)
Quarter: 2010Q2

REPORT INFORMATION
  Report Type: 
  Country: None (occurrence: None)
  Receive Date: 20100421
  Receipt Date: 20100409
  Transmission Date: 20101027
  Serious: Yes (Hospitalization)
  Sender: FDA-Public Use
  Company Number: JP-AMGEN-US407366

PATIENT
  Age: 58 Year
  Sex: Female

DRUGS (1)
  1. ENBREL [Suspect]
     Indication: RHEUMATOID ARTHRITIS
     Dosage: 10 DOSES OF 25 MG
     Route: 058

REACTIONS (3)
  - CONDITION AGGRAVATED [None]
  - POLYMYOSITIS [None]
  - RHEUMATOID ARTHRITIS [None]
